FAERS Safety Report 8586516-5 (Version None)
Quarter: 2012Q3

REPORT INFORMATION
  Report Type: 
  Country: None (occurrence: None)
  Receive Date: 20120810
  Receipt Date: 20120807
  Transmission Date: 20120928
  Serious: No
  Sender: FDA-Public Use
  Company Number: US-B.I. PHARMACEUTICALS,INC./RIDGEFIELD-2012-BP-17776BP

PATIENT
  Age: 78 Year
  Sex: Male

DRUGS (2)
  1. MAGNESIUM HYDROXIDE TAB [Concomitant]
     Indication: DYSPEPSIA
     Route: 048
  2. ZANTAC [Suspect]
     Indication: GASTRIC ULCER
     Dosage: 75 MG
     Route: 048
     Dates: start: 20020101

REACTIONS (2)
  - MUSCULOSKELETAL PAIN [None]
  - MUSCULOSKELETAL CHEST PAIN [None]
